FAERS Safety Report 11839085 (Version 1)
Quarter: 2015Q4

REPORT INFORMATION
  Report Type: Spontaneous
  Country: ZA (occurrence: ZA)
  Receive Date: 20151216
  Receipt Date: 20151216
  Transmission Date: 20160305
  Serious: Yes (Other)
  Sender: FDA-Public Use
  Company Number: ZA-ZYDUS-009690

PATIENT
  Age: 40 Year
  Sex: Male

DRUGS (2)
  1. GLYCEROL [Concomitant]
     Active Substance: GLYCERIN
     Indication: PRODUCT USED FOR UNKNOWN INDICATION
  2. BIGSENS [Suspect]
     Active Substance: METFORMIN HYDROCHLORIDE
     Indication: TYPE 2 DIABETES MELLITUS
     Dosage: TOTAL DIALY DOSE OF 1000 MG
     Route: 048

REACTIONS (2)
  - Diarrhoea haemorrhagic [Unknown]
  - Abdominal pain upper [Unknown]
